FAERS Safety Report 4377961-2 (Version None)
Quarter: 2004Q2

REPORT INFORMATION
  Report Type: 
  Country: None (occurrence: None)
  Receive Date: 20040616
  Receipt Date: 20040602
  Transmission Date: 20050107
  Serious: Yes (Other)
  Sender: FDA-Public Use
  Company Number: PHFR2004GB02321

PATIENT
  Age: 49 Year
  Sex: Female

DRUGS (6)
  1. NATEGLINIDE [Suspect]
     Route: 065
     Dates: start: 20030611, end: 20040406
  2. THYROXINE [Concomitant]
     Indication: HYPOTHYROIDISM
     Dosage: 100UG/DAY
     Route: 048
     Dates: start: 20000101
  3. VALSARTAN [Concomitant]
     Indication: HYPERTENSION
     Dosage: 160MG/DAY
     Route: 048
     Dates: start: 19991001
  4. INDAPAMIDE [Concomitant]
     Indication: HYPERTENSION
     Dosage: 1.5MG/DAY
     Route: 048
     Dates: start: 19991001
  5. FLUVASTATIN [Concomitant]
     Indication: HYPERCHOLESTEROLAEMIA
     Dosage: 30MG/DAY
     Route: 048
     Dates: start: 19991001
  6. METFORMIN HCL [Concomitant]
     Indication: DIABETES MELLITUS
     Dosage: 850MG/DAY
     Dates: start: 19991001

REACTIONS (2)
  - CIRCULATORY COLLAPSE [None]
  - SYNCOPE [None]
